FAERS Safety Report 16411071 (Version 1)
Quarter: 2019Q2

REPORT INFORMATION
  Report Type: Spontaneous
  Country: US (occurrence: US)
  Receive Date: 20190610
  Receipt Date: 20190610
  Transmission Date: 20190711
  Serious: Yes (Other)
  Sender: FDA-Public Use
  Company Number: US-MYLANLABS-2019M1052812

PATIENT
  Sex: Female
  Weight: 64 kg

DRUGS (4)
  1. CLOPIDOGREL AUROBINDO [Concomitant]
     Active Substance: CLOPIDOGREL BISULFATE
  2. COENZYME Q10 [Concomitant]
     Active Substance: UBIDECARENONE
  3. VITAMIN B2                         /00154901/ [Concomitant]
     Active Substance: RIBOFLAVIN
  4. ATORVASTATIN [Suspect]
     Active Substance: ATORVASTATIN
     Indication: PRODUCT USED FOR UNKNOWN INDICATION
     Dosage: UNK
     Route: 048

REACTIONS (4)
  - Abdominal discomfort [Not Recovered/Not Resolved]
  - Feeling abnormal [Not Recovered/Not Resolved]
  - Transient ischaemic attack [Not Recovered/Not Resolved]
  - Drug intolerance [Not Recovered/Not Resolved]
